FAERS Safety Report 7146634-5 (Version None)
Quarter: 2010Q4

REPORT INFORMATION
  Report Type: 
  Country: None (occurrence: None)
  Receive Date: 20101208
  Receipt Date: 20101129
  Transmission Date: 20110411
  Serious: Yes (Other)
  Sender: FDA-Public Use
  Company Number: DE-ELI_LILLY_AND_COMPANY-DE201008007824

PATIENT
  Age: 67 Year
  Sex: Female
  Weight: 77 kg

DRUGS (2)
  1. GEMCITABINE HYDROCHLORIDE [Suspect]
     Indication: BREAST CANCER
     Dosage: 1870 MG, DAILY (1/D)
     Route: 042
     Dates: start: 20100519, end: 20100707
  2. DOCETAXEL [Suspect]
     Indication: BREAST CANCER
     Dosage: 140 MG, DAILY (1/D)
     Route: 042
     Dates: start: 20100519, end: 20100630

REACTIONS (1)
  - MYOCARDIAL INFARCTION [None]
